FAERS Safety Report 8935139 (Version 2)
Quarter: 2013Q1

REPORT INFORMATION
  Report Type: Spontaneous
  Country: IT (occurrence: IT)
  Receive Date: 20121129
  Receipt Date: 20130125
  Transmission Date: 20140127
  Serious: Yes (Disabling)
  Sender: FDA-Public Use
  Company Number: PHHY2012IT106893

PATIENT
  Age: 83 Year
  Sex: Female

DRUGS (8)
  1. RASILEZ [Suspect]
     Indication: HYPERTENSION
     Dosage: 150 MG, DAILY
     Route: 048
     Dates: start: 20120621, end: 20120926
  2. MEDIPO [Concomitant]
     Dosage: 20 MG, UNK
     Route: 048
     Dates: start: 20120921, end: 20120926
  3. DIURESIX [Concomitant]
     Dosage: 10 MG, UNK
     Route: 048
     Dates: start: 20120702, end: 20120926
  4. CORDARONE [Concomitant]
     Dosage: 200 MG, UNK
     Dates: start: 20120618, end: 20120926
  5. IPERTEN [Concomitant]
     Dosage: 20 MG, UNK
     Route: 048
     Dates: start: 20030702, end: 20120926
  6. ZYLORIC [Concomitant]
     Dosage: 150 MG
     Route: 048
     Dates: start: 20111120, end: 20120926
  7. LANSOX [Concomitant]
     Dosage: 15 MG, UNK
     Route: 048
     Dates: start: 20050901, end: 20120926
  8. CARDIOASPIRIN [Concomitant]
     Dosage: 100 MG, UNK
     Route: 048
     Dates: start: 20120313, end: 20120926

REACTIONS (9)
  - Arthralgia [Recovered/Resolved]
  - Asthenia [Recovered/Resolved]
  - Dyspepsia [Recovered/Resolved]
  - Abdominal pain upper [Recovered/Resolved]
  - Oedema [Recovered/Resolved]
  - Azotaemia [Unknown]
  - Blood urea decreased [Unknown]
  - Haemoglobin decreased [Unknown]
  - Blood creatinine increased [Unknown]
